FAERS Safety Report 18725912 (Version 2)
Quarter: 2021Q2

REPORT INFORMATION
  Report Type: Spontaneous
  Country: DE (occurrence: DE)
  Receive Date: 20210111
  Receipt Date: 20210415
  Transmission Date: 20210717
  Serious: Yes (Hospitalization)
  Sender: FDA-Public Use
  Company Number: DE-BAUSCH-BL-2020-039055

PATIENT
  Age: 43 Year
  Sex: Female
  Weight: 89 kg

DRUGS (10)
  1. LEVETIRACETAM. [Suspect]
     Active Substance: LEVETIRACETAM
     Indication: WRONG PATIENT RECEIVED PRODUCT
     Dosage: TOTAL
     Route: 065
     Dates: start: 20201216, end: 20201216
  2. VITAMIN D [Suspect]
     Active Substance: VITAMIN D NOS
     Indication: WRONG PATIENT RECEIVED PRODUCT
     Dosage: TOTAL
     Route: 065
     Dates: start: 20201216, end: 20201216
  3. FOLIC ACID. [Suspect]
     Active Substance: FOLIC ACID
     Indication: WRONG PATIENT RECEIVED PRODUCT
     Dosage: TOTAL
     Route: 065
     Dates: start: 20201216, end: 20201216
  4. LAMOTRIGINE. [Suspect]
     Active Substance: LAMOTRIGINE
     Indication: WRONG PATIENT RECEIVED PRODUCT
     Dosage: TOTAL
     Route: 065
     Dates: start: 20201216, end: 20201216
  5. LACOSAMIDE. [Suspect]
     Active Substance: LACOSAMIDE
     Indication: PRODUCT USED FOR UNKNOWN INDICATION
     Route: 065
  6. FYCOMPA [Suspect]
     Active Substance: PERAMPANEL
     Indication: WRONG PATIENT RECEIVED PRODUCT
     Dosage: TOTAL
     Route: 048
     Dates: start: 20201216, end: 20201216
  7. LEVOTHYROXINE. [Suspect]
     Active Substance: LEVOTHYROXINE
     Indication: WRONG PATIENT RECEIVED PRODUCT
     Dosage: TOTAL
     Route: 065
     Dates: start: 20201216, end: 20201216
  8. LORAZEPAM. [Suspect]
     Active Substance: LORAZEPAM
     Indication: WRONG PATIENT RECEIVED PRODUCT
     Dosage: TOTAL
     Route: 065
     Dates: start: 20201216, end: 20201216
  9. BACLOFEN. [Suspect]
     Active Substance: BACLOFEN
     Indication: WRONG PATIENT RECEIVED PRODUCT
     Dosage: TOTAL
     Route: 065
     Dates: start: 20201216, end: 20201216
  10. TOPIRAMATE. [Concomitant]
     Active Substance: TOPIRAMATE
     Indication: PRODUCT USED FOR UNKNOWN INDICATION
     Route: 065

REACTIONS (4)
  - Fatigue [Unknown]
  - Hypotension [Unknown]
  - Self-medication [Unknown]
  - Wrong patient received product [Unknown]

NARRATIVE: CASE EVENT DATE: 20201216
